FAERS Safety Report 6753040-1 (Version None)
Quarter: 2010Q2

REPORT INFORMATION
  Report Type: 
  Country: None (occurrence: None)
  Receive Date: 20100603
  Receipt Date: 20100527
  Transmission Date: 20101027
  Serious: Yes (Hospitalization)
  Sender: FDA-Public Use
  Company Number: IT-BAYER-201026688GPV

PATIENT
  Age: 74 Year
  Sex: Male
  Weight: 75 kg

DRUGS (5)
  1. SORAFENIB [Suspect]
     Indication: ADENOCARCINOMA PANCREAS
     Dosage: TOTAL DAILY DOSE: 800 MG
     Route: 048
     Dates: start: 20100414, end: 20100524
  2. LAPATINIB [Suspect]
     Indication: ADENOCARCINOMA PANCREAS
     Dosage: TOTAL DAILY DOSE: 100 MG
     Route: 048
     Dates: start: 20100414, end: 20100524
  3. HUMALOG [Concomitant]
     Indication: DIABETES MELLITUS
     Route: 058
     Dates: start: 19880101
  4. LANTUS [Concomitant]
     Indication: DIABETES MELLITUS
     Route: 058
     Dates: start: 19880101
  5. CO-EFFERALGAN [Concomitant]
     Indication: PAIN
     Route: 048
     Dates: start: 20100401

REACTIONS (1)
  - HEPATITIS [None]
